FAERS Safety Report 25457953 (Version 1)
Quarter: 2025Q2

REPORT INFORMATION
  Report Type: Spontaneous
  Country: IE (occurrence: IE)
  Receive Date: 20250620
  Receipt Date: 20250620
  Transmission Date: 20250716
  Serious: Yes (Hospitalization)
  Sender: ACCORD
  Company Number: None

PATIENT
  Sex: Male
  Weight: 3.1 kg

DRUGS (1)
  1. SERTRALINE [Suspect]
     Active Substance: SERTRALINE HYDROCHLORIDE

REACTIONS (4)
  - Foetal exposure timing unspecified [Not Recovered/Not Resolved]
  - Neonatal oversedation [Not Recovered/Not Resolved]
  - Respiratory distress [Not Recovered/Not Resolved]
  - Resuscitation [Not Recovered/Not Resolved]

NARRATIVE: CASE EVENT DATE: 20250511
